FAERS Safety Report 7748398-0 (Version None)
Quarter: 2011Q3

REPORT INFORMATION
  Report Type: 
  Country: None (occurrence: None)
  Receive Date: 20110913
  Receipt Date: 20110906
  Transmission Date: 20111222
  Serious: Yes (Other)
  Sender: FDA-Public Use
  Company Number: US-AMGEN-USASP2011045347

PATIENT
  Sex: Female

DRUGS (3)
  1. SENSIPAR [Suspect]
     Dosage: 60 MG, UNK
     Dates: start: 20110101
  2. SENSIPAR [Suspect]
     Indication: HYPERPARATHYROIDISM PRIMARY
     Dosage: 30 MG, BID
     Dates: start: 20110101
  3. SENSIPAR [Suspect]
     Dosage: 90 MG, QD
     Dates: start: 20110101

REACTIONS (2)
  - DRUG INEFFECTIVE [None]
  - MEDICATION ERROR [None]
